FAERS Safety Report 23227451 (Version 1)
Quarter: 2023Q4

REPORT INFORMATION
  Report Type: Spontaneous
  Country: CN (occurrence: CN)
  Receive Date: 20231124
  Receipt Date: 20231124
  Transmission Date: 20240110
  Serious: Yes (Disabling, Other)
  Sender: FDA-Public Use
  Company Number: CN-PFIZER INC-PV202300189384

PATIENT
  Age: 56 Year
  Sex: Female
  Weight: 45 kg

DRUGS (2)
  1. EXEMESTANE [Suspect]
     Active Substance: EXEMESTANE
     Indication: Breast cancer female
     Dosage: 25 MG, 1X/DAY
     Route: 048
     Dates: start: 20231030, end: 20231109
  2. DALPICICLIB ISETHIONATE [Suspect]
     Active Substance: DALPICICLIB ISETHIONATE
     Indication: Breast cancer female
     Dosage: 150 MG, 1X/DAY
     Route: 048
     Dates: start: 20231030, end: 20231109

REACTIONS (2)
  - Platelet count decreased [Unknown]
  - Myelosuppression [Unknown]

NARRATIVE: CASE EVENT DATE: 20231114
